FAERS Safety Report 8002652-6 (Version None)
Quarter: 2011Q4

REPORT INFORMATION
  Report Type: 
  Country: None (occurrence: None)
  Receive Date: 20111220
  Receipt Date: 20111209
  Transmission Date: 20120403
  Serious: Yes (Life-Threatening, Hospitalization, Other)
  Sender: FDA-Public Use
  Company Number: US-CYPR-2011-000050

PATIENT
  Sex: Male
  Weight: 79.3795 kg

DRUGS (15)
  1. VITAMKIN C [Concomitant]
  2. FOLIC ACID [Concomitant]
  3. GABAPENTIN [Concomitant]
  4. ASPIRIN [Suspect]
     Indication: CORONARY ARTERY DISEASE
     Dosage: 81 MG, QD, ORAL (325; 81  MG, QD, ORAL
     Route: 048
     Dates: start: 20110608
  5. ASPIRIN [Suspect]
     Indication: CORONARY ARTERY DISEASE
     Dosage: 81 MG, QD, ORAL (325; 81  MG, QD, ORAL
     Route: 048
     Dates: start: 20110306, end: 20110607
  6. ASPIRIN [Suspect]
     Indication: CORONARY ARTERY DISEASE
     Dosage: 81 MG, QD, ORAL (325; 81  MG, QD, ORAL
     Route: 048
     Dates: end: 20100301
  7. METOPROLOL TARTRATE [Concomitant]
  8. VITAMIN B6 [Concomitant]
  9. CLOPIDOGREL [Suspect]
     Indication: ANTIPLATELET THERAPY
     Dosage: 75 MG, QD, ORAL
     Route: 048
     Dates: start: 20110309, end: 20110908
  10. ATORVASTATIN [Concomitant]
  11. CALCIUM CITRATE [Concomitant]
  12. MULTI-VITAMIN [Concomitant]
  13. CO Q10 [Concomitant]
  14. VITAMIN B-12 [Concomitant]
  15. CYPHER STENT [Concomitant]

REACTIONS (13)
  - HAEMOGLOBIN DECREASED [None]
  - HAEMATOCRIT DECREASED [None]
  - PERICARDIAL DISEASE [None]
  - CEREBRAL INFARCTION [None]
  - ARTERIOSCLEROSIS [None]
  - CHOLELITHIASIS [None]
  - ABDOMINAL PAIN [None]
  - DIARRHOEA [None]
  - ISCHAEMIC STROKE [None]
  - CEREBRAL ATROPHY [None]
  - AORTIC CALCIFICATION [None]
  - HEART RATE DECREASED [None]
  - CEREBRAL ARTERY STENOSIS [None]
